FAERS Safety Report 6314756-4 (Version None)
Quarter: 2009Q3

REPORT INFORMATION
  Report Type: 
  Country: None (occurrence: None)
  Receive Date: 20090817
  Receipt Date: 20090802
  Transmission Date: 20100115
  Serious: Yes (Other)
  Sender: FDA-Public Use
  Company Number: FABR-1000840

PATIENT
  Age: 11 Year
  Sex: Male
  Weight: 25.3 kg

DRUGS (5)
  1. FABRAZYME [Suspect]
     Indication: FABRY'S DISEASE
     Dosage: 25 MG/KG, Q2W, INTRAVENOUS
     Route: 042
     Dates: start: 20090701
  2. LORATADINE (LORATADINE) TABLET [Concomitant]
  3. FLUTICASONE PROPIONATE [Concomitant]
  4. INHALATION GAS [Concomitant]
  5. IRON (IRON) [Concomitant]

REACTIONS (4)
  - HYPOCHROMIC ANAEMIA [None]
  - METABOLIC DISORDER [None]
  - PARAESTHESIA [None]
  - PYREXIA [None]
